FAERS Safety Report 19916576 (Version 1)
Quarter: 2021Q4

REPORT INFORMATION
  Report Type: Other
  Country: SI (occurrence: SI)
  Receive Date: 20211005
  Receipt Date: 20211005
  Transmission Date: 20220303
  Serious: Yes (Life-Threatening, Hospitalization)
  Sender: FDA-Public Use
  Company Number: SI-CAPLIN STERILES LIMITED-2119177

PATIENT
  Age: 51 Year
  Sex: Male

DRUGS (1)
  1. TRANEXAMIC ACID [Suspect]
     Active Substance: TRANEXAMIC ACID
     Route: 039

REACTIONS (21)
  - Coma [Recovered/Resolved]
  - Cardiac perfusion defect [Recovering/Resolving]
  - Myoclonic epilepsy [Unknown]
  - Hypertension [Recovered/Resolved]
  - Brain oedema [Recovering/Resolving]
  - Encephalopathy [Recovering/Resolving]
  - Nystagmus [Recovering/Resolving]
  - Medication error [Unknown]
  - Administration site pain [Unknown]
  - Ventricular extrasystoles [Not Recovered/Not Resolved]
  - Ventricular arrhythmia [Unknown]
  - Salivary hypersecretion [Recovered/Resolved]
  - Facial paralysis [Recovering/Resolving]
  - Dysphonia [Unknown]
  - Paresis [Unknown]
  - Paresis [Unknown]
  - Urinary retention [Unknown]
  - Cauda equina syndrome [Unknown]
  - Corneal reflex decreased [Recovering/Resolving]
  - Bladder dysfunction [Unknown]
  - Product use issue [Unknown]
